FAERS Safety Report 21203135 (Version 2)
Quarter: 2022Q3

REPORT INFORMATION
  Report Type: Spontaneous
  Country: US (occurrence: US)
  Receive Date: 20220811
  Receipt Date: 20220817
  Transmission Date: 20221027
  Serious: Yes (Hospitalization)
  Sender: FDA-Public Use
  Company Number: US-BRISTOL-MYERS SQUIBB COMPANY-2022-084726

PATIENT
  Age: 71 Year
  Sex: Male
  Weight: 74.8 kg

DRUGS (2)
  1. REVLIMID [Suspect]
     Active Substance: LENALIDOMIDE
     Indication: Product used for unknown indication
     Route: 048
  2. VORINOSTAT [Concomitant]
     Active Substance: VORINOSTAT
     Indication: Product used for unknown indication
     Dosage: HELD SINCE COMPLICATION SPECIFY VALVE SURGERY REQUIRING WOUND REPAIR?1-21
     Route: 048
     Dates: start: 20220321, end: 20220327

REACTIONS (2)
  - Chest pain [Recovered/Resolved]
  - Herpes zoster [Recovered/Resolved]

NARRATIVE: CASE EVENT DATE: 20220801
